FAERS Safety Report 9605922 (Version 2)
Quarter: 2013Q4

REPORT INFORMATION
  Report Type: Spontaneous
  Country: US (occurrence: US)
  Receive Date: 20131008
  Receipt Date: 20131010
  Transmission Date: 20140711
  Serious: Yes (Other)
  Sender: FDA-Public Use
  Company Number: CHPA2013US015232

PATIENT
  Age: 57 Year
  Sex: Female

DRUGS (4)
  1. VOLTAREN GEL [Suspect]
     Indication: RHEUMATOID ARTHRITIS
     Dosage: UNK, QD
     Route: 061
     Dates: start: 2011
  2. VOLTAREN GEL [Suspect]
     Indication: NEURALGIA
     Dosage: UNK, QD
     Route: 061
  3. VOLTAREN GEL [Suspect]
     Indication: OFF LABEL USE
  4. CYMBALTA [Concomitant]
     Indication: RHEUMATOID ARTHRITIS
     Dosage: UNK,UNK
     Route: 048

REACTIONS (7)
  - Joint swelling [Not Recovered/Not Resolved]
  - Local swelling [Not Recovered/Not Resolved]
  - Road traffic accident [Recovering/Resolving]
  - Neuralgia [Recovering/Resolving]
  - Therapeutic response unexpected [Unknown]
  - Drug administered at inappropriate site [Unknown]
  - Wrong technique in drug usage process [Unknown]
